FAERS Safety Report 23353761 (Version 1)
Quarter: 2024Q1

REPORT INFORMATION
  Report Type: Spontaneous
  Country: US (occurrence: US)
  Receive Date: 20240101
  Receipt Date: 20240101
  Transmission Date: 20240410
  Serious: No
  Sender: FDA-Public Use
  Company Number: US-PURDUE PHARMA-USA-2023-0305576

PATIENT
  Age: 60 Year
  Sex: Female
  Weight: 79.38 kg

DRUGS (7)
  1. BUTRANS [Suspect]
     Active Substance: BUPRENORPHINE
     Indication: Pain management
     Dosage: 10 MICROGRAM (7 DAY PATCH)
     Route: 062
     Dates: start: 202306
  2. MORPHINE SULFATE [Suspect]
     Active Substance: MORPHINE SULFATE
     Indication: Product used for unknown indication
     Dosage: UNK
     Route: 065
  3. DILAUDID [Suspect]
     Active Substance: HYDROMORPHONE HYDROCHLORIDE
     Indication: Product used for unknown indication
     Dosage: UNK
     Route: 048
  4. CORTISONE [Suspect]
     Active Substance: CORTISONE
     Indication: Application site pruritus
     Dosage: UNK
     Route: 062
  5. CORTISONE [Suspect]
     Active Substance: CORTISONE
     Indication: Skin reaction
  6. GABAPENTIN [Suspect]
     Active Substance: GABAPENTIN
     Indication: Pain
     Dosage: 1 CAPSL, Q8H
     Route: 048
  7. CEFIXIME [Concomitant]
     Active Substance: CEFIXIME
     Indication: Muscle relaxant therapy
     Dosage: 1 TABLET, DAILY
     Route: 065

REACTIONS (6)
  - Inhibitory drug interaction [Unknown]
  - Application site pruritus [Recovered/Resolved]
  - Inadequate analgesia [Unknown]
  - Drug hypersensitivity [Unknown]
  - Application site reaction [Unknown]
  - Peripheral swelling [Unknown]

NARRATIVE: CASE EVENT DATE: 20230601
